FAERS Safety Report 7560306-4 (Version None)
Quarter: 2011Q2

REPORT INFORMATION
  Report Type: 
  Country: None (occurrence: None)
  Receive Date: 20110525
  Receipt Date: 20110214
  Transmission Date: 20111010
  Serious: No
  Sender: FDA-Public Use
  Company Number: 323802

PATIENT
  Age: 57 Year
  Sex: Female

DRUGS (1)
  1. VICTOZA [Suspect]
     Indication: TYPE 2 DIABETES MELLITUS
     Dosage: 0.6 MG, QD, SUBCUTANEOUS
     Route: 058
     Dates: start: 20110208

REACTIONS (5)
  - INFLUENZA [None]
  - OROPHARYNGEAL PAIN [None]
  - DIARRHOEA [None]
  - VOMITING [None]
  - BLOOD GLUCOSE INCREASED [None]
